FAERS Safety Report 13549822 (Version 1)
Quarter: 2017Q2

REPORT INFORMATION
  Report Type: Spontaneous
  Country: US (occurrence: US)
  Receive Date: 20170516
  Receipt Date: 20170516
  Transmission Date: 20170830
  Serious: Yes (Hospitalization, Disabling)
  Sender: FDA-Public Use
  Company Number: None

PATIENT
  Age: 80 Year
  Sex: Female
  Weight: 80.81 kg

DRUGS (2)
  1. AMLODIPINE [Suspect]
     Active Substance: AMLODIPINE BESYLATE
     Indication: HYPERTENSION
     Dosage: 30 PILLS ONCE A DAY MOUTH-WITH WATER
     Route: 048
     Dates: start: 20170404, end: 20170429
  2. CARISAPRODOL [Concomitant]

REACTIONS (8)
  - Flushing [None]
  - Headache [None]
  - Blood pressure increased [None]
  - Loss of personal independence in daily activities [None]
  - Fear [None]
  - Slow speech [None]
  - Movement disorder [None]
  - Feeling abnormal [None]

NARRATIVE: CASE EVENT DATE: 20170420
